FAERS Safety Report 4806858-6 (Version None)
Quarter: 2005Q4

REPORT INFORMATION
  Report Type: 
  Country: None (occurrence: None)
  Receive Date: 20051019
  Receipt Date: 20051004
  Transmission Date: 20060501
  Serious: Yes (Death, Hospitalization)
  Sender: FDA-Public Use
  Company Number: 1909

PATIENT
  Age: 48 Year
  Sex: Female

DRUGS (3)
  1. TARGRETIN [Suspect]
     Indication: MYCOSIS FUNGOIDES
     Dosage: 225 MG QD PO
     Route: 048
     Dates: start: 20050108, end: 20050810
  2. DARBEPOETIN ALFA [Concomitant]
  3. LEVOFLOXACIN [Concomitant]

REACTIONS (4)
  - DERMATITIS EXFOLIATIVE [None]
  - DISEASE PROGRESSION [None]
  - LEUKOCYTOSIS [None]
  - MYCOSIS FUNGOIDES [None]
